FAERS Safety Report 23742789 (Version 2)
Quarter: 2024Q2

REPORT INFORMATION
  Report Type: Spontaneous
  Country: GB (occurrence: GB)
  Receive Date: 20240415
  Receipt Date: 20240419
  Transmission Date: 20240716
  Serious: Yes (Death, Other)
  Sender: FDA-Public Use
  Company Number: GB-GLAXOSMITHKLINE-GB2024043393

PATIENT
  Sex: Female

DRUGS (2)
  1. BEVACIZUMAB [Suspect]
     Active Substance: BEVACIZUMAB
     Dosage: UNK
  2. ZEJULA [Suspect]
     Active Substance: NIRAPARIB
     Dosage: UNK

REACTIONS (6)
  - Neoplasm malignant [Fatal]
  - Urinary tract infection bacterial [Unknown]
  - Infection [Unknown]
  - Liver disorder [Unknown]
  - Diarrhoea [Unknown]
  - Vomiting [Unknown]
